FAERS Safety Report 4286677-2 (Version None)
Quarter: 2004Q1

REPORT INFORMATION
  Report Type: 
  Country: None (occurrence: None)
  Receive Date: 20040204
  Receipt Date: 20040124
  Transmission Date: 20041129
  Serious: Yes (Death, Hospitalization)
  Sender: FDA-Public Use
  Company Number: JP-JNJFOC-20040104980

PATIENT
  Age: 76 Year
  Sex: Male
  Weight: 51.5 kg

DRUGS (10)
  1. REMICADE [Suspect]
     Indication: RHEUMATOID ARTHRITIS
     Dosage: 3 MG/KG, 1 IN 1 AS NECESSARY, INTRAVENOUS DRIP
     Route: 041
     Dates: start: 20031213, end: 20031213
  2. RHEUMATREX [Suspect]
     Indication: RHEUMATOID ARTHRITIS
     Dosage: 4 MG,  IN 1 WEEK, ORAL
     Route: 048
     Dates: start: 20031210, end: 20040110
  3. PREDONIN (PREDNISOLONE) UNKNOWN [Concomitant]
  4. OSTELUC (ETODOLAC) TABLETS [Concomitant]
  5. NORVASC (AMLODIPINE BESILATE) UNKNOWN [Concomitant]
  6. ACECOL (TEMOCAPRIL HYDROCHLORIDE) UNKNOWN [Concomitant]
  7. BROPRESS (ALL OTHER THERAPEUTIC PRODUCTS) UNKNOWN [Concomitant]
  8. OPALMON (LIMAPROST) UNKNOWN [Concomitant]
  9. ALOSITOL (ALLOPURINOL) TABLETS [Concomitant]
  10. LAXIS (FUROSEMIDE) TABLETS [Concomitant]

REACTIONS (13)
  - BLOOD ALBUMIN INCREASED [None]
  - BLOOD GLUCOSE DECREASED [None]
  - BLOOD LACTATE DEHYDROGENASE INCREASED [None]
  - BLOOD POTASSIUM DECREASED [None]
  - BLOOD PRESSURE DECREASED [None]
  - C-REACTIVE PROTEIN INCREASED [None]
  - CARDIAC ARREST [None]
  - DEPRESSED LEVEL OF CONSCIOUSNESS [None]
  - DRUG INTERACTION [None]
  - PANCYTOPENIA [None]
  - PROTEIN TOTAL DECREASED [None]
  - PYREXIA [None]
  - RENAL IMPAIRMENT [None]
